FAERS Safety Report 22103666 (Version 1)
Quarter: 2023Q1

REPORT INFORMATION
  Report Type: Spontaneous
  Country: US (occurrence: US)
  Receive Date: 20230316
  Receipt Date: 20230316
  Transmission Date: 20230417
  Serious: Yes (Death, Other)
  Sender: FDA-Public Use
  Company Number: US-CATALENT PHARMA SOLUTIONS-CAT-000012-2023

PATIENT
  Age: 39 Year
  Sex: Female

DRUGS (9)
  1. VALPROIC ACID [Suspect]
     Active Substance: VALPROIC ACID
     Indication: Product used for unknown indication
  2. CARVEDILOL [Suspect]
     Active Substance: CARVEDILOL
     Indication: Product used for unknown indication
     Route: 065
  3. BUPRENORPHINE [Suspect]
     Active Substance: BUPRENORPHINE
     Indication: Product used for unknown indication
     Route: 065
  4. RISPERIDONE [Suspect]
     Active Substance: RISPERIDONE
     Indication: Product used for unknown indication
     Route: 065
  5. CITALOPRAM [Suspect]
     Active Substance: CITALOPRAM HYDROBROMIDE
     Indication: Product used for unknown indication
     Route: 065
  6. MIRTAZAPINE [Suspect]
     Active Substance: MIRTAZAPINE
     Indication: Product used for unknown indication
     Route: 065
  7. BENZODIAZEPINE [Suspect]
     Active Substance: BENZODIAZEPINE
     Indication: Product used for unknown indication
     Route: 065
  8. FUROSEMIDE [Suspect]
     Active Substance: FUROSEMIDE
     Indication: Product used for unknown indication
     Route: 065
  9. AMPHETAMINE [Suspect]
     Active Substance: AMPHETAMINE
     Indication: Product used for unknown indication
     Route: 065

REACTIONS (1)
  - Suspected suicide [Fatal]
